FAERS Safety Report 6041880-6 (Version None)
Quarter: 2009Q1

REPORT INFORMATION
  Report Type: 
  Country: None (occurrence: None)
  Receive Date: 20090116
  Receipt Date: 20090108
  Transmission Date: 20090719
  Serious: Yes (Other)
  Sender: FDA-Public Use
  Company Number: FR-AMGEN-US307302

PATIENT
  Sex: Male
  Weight: 75 kg

DRUGS (6)
  1. ENBREL [Suspect]
     Indication: RHEUMATOID ARTHRITIS
     Dosage: 50 MG TOTAL WEEKLY
     Route: 058
     Dates: start: 20030801
  2. ATACAND [Concomitant]
     Route: 048
  3. MOPRAL [Concomitant]
     Route: 048
     Dates: start: 20010101
  4. CORTANCYL [Concomitant]
     Route: 048
  5. PLAVIX [Concomitant]
     Route: 048
     Dates: start: 20010101
  6. TAMSULOSIN HCL [Concomitant]
     Dates: start: 20070101

REACTIONS (1)
  - BASAL CELL CARCINOMA [None]
